FAERS Safety Report 21642527 (Version 1)
Quarter: 2022Q4

REPORT INFORMATION
  Report Type: Report from Study
  Country: BR (occurrence: BR)
  Receive Date: 20221125
  Receipt Date: 20221125
  Transmission Date: 20230113
  Serious: Yes (Disabling)
  Sender: FDA-Public Use
  Company Number: BR-CELLTRION INC.-2022BR019691

PATIENT

DRUGS (12)
  1. INFLIXIMAB [Suspect]
     Active Substance: INFLIXIMAB
     Indication: Rheumatoid arthritis
     Dosage: 3 AMPOULES EVERY 50 DAYS
     Route: 042
     Dates: end: 20220916
  2. REMICADE [Suspect]
     Active Substance: INFLIXIMAB
     Indication: Rheumatoid arthritis
     Dosage: UNK
     Dates: start: 20220916
  3. REMICADE [Suspect]
     Active Substance: INFLIXIMAB
     Dosage: UNK
     Dates: start: 20221111
  4. KETOCONAZOLE [Concomitant]
     Active Substance: KETOCONAZOLE
     Indication: Hypothyroidism
     Dosage: 1 PILL A DAY
     Route: 048
     Dates: start: 202201
  5. METFORMIN HYDROCHLORIDE [Concomitant]
     Active Substance: METFORMIN HYDROCHLORIDE
     Indication: Diabetes prophylaxis
     Dosage: 2 PILLS A DAY
     Route: 048
     Dates: start: 202112
  6. ASPIRIN [Concomitant]
     Active Substance: ASPIRIN
     Indication: Anticoagulant therapy
     Dosage: 1 PILL A DAY; 10 YEARS AGO
     Route: 048
  7. OLMESARTAN [Concomitant]
     Active Substance: OLMESARTAN
     Indication: Hypertension
     Dosage: 1 PILL A DAY; 10 YEARS AGO
     Route: 048
  8. AMLODIPINE [Concomitant]
     Active Substance: AMLODIPINE BESYLATE
     Indication: Hypertension
     Dosage: 1 PILL A DAY; 10 YEARS AGO
     Route: 048
  9. METOPROLOL SUCCINATE [Concomitant]
     Active Substance: METOPROLOL SUCCINATE
     Indication: Cardiovascular disorder
     Dosage: 2 PILLS A DAY; 10 YEARS AGO
     Route: 048
  10. SIMVASTATIN [Concomitant]
     Active Substance: SIMVASTATIN
     Indication: Cardiovascular disorder
     Dosage: 1 PILL A DAY; 10 YEARS AGO
     Route: 048
  11. METHOTREXATE [Concomitant]
     Active Substance: METHOTREXATE
     Indication: Rheumatic disorder
     Dosage: 0.5 MILLILITER, 1/WEEK; 10 YEARS AGO
     Route: 065
  12. FOLIC ACID [Concomitant]
     Active Substance: FOLIC ACID
     Indication: Supplementation therapy
     Dosage: 1CP/WEEK; FROM 5 TO 10 YEARS-IN USE
     Route: 048

REACTIONS (8)
  - Bedridden [Unknown]
  - Gait inability [Unknown]
  - Blood pressure fluctuation [Unknown]
  - Hand deformity [Unknown]
  - Fatigue [Unknown]
  - Pain [Unknown]
  - Treatment delayed [Unknown]
  - Product availability issue [Unknown]

NARRATIVE: CASE EVENT DATE: 20220906
